FAERS Safety Report 5530863-8 (Version None)
Quarter: 2007Q4

REPORT INFORMATION
  Report Type: 
  Country: None (occurrence: None)
  Receive Date: 20071130
  Receipt Date: 20071127
  Transmission Date: 20080405
  Serious: Yes (Life-Threatening)
  Sender: FDA-Public Use
  Company Number: PT-SANOFI-SYNTHELABO-A01200712425

PATIENT
  Sex: Male
  Weight: 60 kg

DRUGS (17)
  1. BUPRENORPHINE HCL [Concomitant]
     Indication: PAIN
     Dosage: UNK
     Route: 062
     Dates: start: 20070901
  2. LANSOPRAZOLE [Concomitant]
     Indication: PROPHYLAXIS
     Dosage: 1 DF
     Route: 048
  3. ZOLPIDEM TARTRATE [Concomitant]
     Indication: INSOMNIA
     Dosage: 10 MG
     Route: 048
  4. ATORVASTATIN CALCIUM [Concomitant]
     Indication: HYPERLIPIDAEMIA
     Dosage: 20 MG
     Route: 048
  5. HYDROCHLOROTHIAZIDE [Concomitant]
     Indication: HYPERTENSION
     Dosage: 125 MG
     Route: 048
  6. LOSARTAN POTASSIUM [Concomitant]
     Indication: HYPERTENSION
     Dosage: 125 MG
     Route: 048
  7. CAPTOPRIL [Concomitant]
     Indication: HYPERTENSION
     Dosage: 25 MG
     Route: 048
  8. ONDANSETRON HYDROCHLORIDE [Concomitant]
     Indication: COLON CANCER METASTATIC
     Route: 041
     Dates: start: 20070924
  9. IBUPROFEN [Concomitant]
     Indication: PAIN
     Dosage: UNK
     Route: 048
     Dates: start: 20070601, end: 20070901
  10. TAMSULOSIN HCL [Concomitant]
     Indication: BENIGN PROSTATIC HYPERPLASIA
     Dosage: 4 MG
     Route: 048
  11. VENLAFAXIINE HCL [Concomitant]
     Indication: DEPRESSION
     Dosage: 75 MG
     Route: 048
  12. CLOPIDOGREL [Concomitant]
     Indication: PROPHYLAXIS
     Dosage: 75 MG
     Route: 048
  13. DEXAMETHASONE SODIUM PHOSPHATE [Concomitant]
     Indication: COLON CANCER METASTATIC
     Route: 041
     Dates: start: 20070924
  14. FLUOROURACIL [Concomitant]
     Indication: COLON CANCER METASTATIC
     Route: 040
     Dates: start: 20071105, end: 20071105
  15. FLUOROURACIL [Concomitant]
     Route: 041
     Dates: start: 20071105, end: 20071106
  16. CALCIUM LEVOFOLINATE [Concomitant]
     Indication: COLON CANCER METASTATIC
     Route: 041
     Dates: start: 20071105, end: 20071105
  17. ELOXATIN [Suspect]
     Indication: COLON CANCER
     Route: 041
     Dates: start: 20071105, end: 20071105

REACTIONS (7)
  - CATHETER SITE ERYTHEMA [None]
  - CHEST PAIN [None]
  - HYPOTENSION [None]
  - PALMAR ERYTHEMA [None]
  - PERIORBITAL OEDEMA [None]
  - PHARMACEUTICAL PRODUCT COMPLAINT [None]
  - PRURITUS [None]
